FAERS Safety Report 5924943-2 (Version None)
Quarter: 2008Q4

REPORT INFORMATION
  Report Type: 
  Country: None (occurrence: None)
  Receive Date: 20081020
  Receipt Date: 20081020
  Transmission Date: 20090506
  Serious: No
  Sender: FDA-Public Use
  Company Number: None

PATIENT
  Sex: Female
  Weight: 88.4514 kg

DRUGS (4)
  1. PYRIDOSTIGMINE BROMIDE [Suspect]
     Indication: MYASTHENIA GRAVIS
     Dosage: 3 DAILY
     Dates: start: 19850101, end: 20081019
  2. ALENDRONATE SODIUM [Concomitant]
  3. SIMVASTATIN [Concomitant]
  4. PAROXETINE HCL [Concomitant]

REACTIONS (9)
  - ASTHENIA [None]
  - DIARRHOEA [None]
  - FATIGUE [None]
  - HEART RATE IRREGULAR [None]
  - HYPERHIDROSIS [None]
  - INSOMNIA [None]
  - LETHARGY [None]
  - THERAPEUTIC RESPONSE UNEXPECTED [None]
  - VISUAL IMPAIRMENT [None]
